FAERS Safety Report 8562810 (Version 2)
Quarter: 2012Q4

REPORT INFORMATION
  Report Type: 
  Country: CA (occurrence: CA)
  Receive Date: 20120515
  Receipt Date: 20121001
  Transmission Date: 20130627
  Serious: Yes (Life-Threatening, Hospitalization, Other)
  Sender: FDA-Public Use
  Company Number: CA-GENZYME-THYM-1003229

PATIENT
  Age: 52 Year
  Sex: Male
  Weight: 79 kg

DRUGS (12)
  1. THYMOGLOBULINE [Suspect]
     Indication: PROPHYLAXIS AGAINST GRAFT VERSUS HOST DISEASE
     Dosage: 0.5 mg/kg, qd
     Route: 042
     Dates: start: 20111031, end: 20111031
  2. THYMOGLOBULINE [Suspect]
     Dosage: 2 mg/kg, qd
     Route: 042
     Dates: start: 20111101, end: 20111101
  3. THYMOGLOBULINE [Suspect]
     Dosage: 2 mg/kg, qd
     Route: 042
     Dates: start: 20111103, end: 20111103
  4. RITUXIMAB [Concomitant]
     Indication: PRODUCT USED FOR UNKNOWN INDICATION
     Dosage: 700 mg, 1x/w
     Route: 042
  5. CYCLOSPORIN [Concomitant]
     Indication: PRODUCT USED FOR UNKNOWN INDICATION
     Dosage: 125 mg, bid
     Route: 048
  6. CYCLOSPORIN [Concomitant]
     Dosage: 125 mg/day, bid
     Route: 048
  7. RISEDRONATE SODIUM [Concomitant]
     Indication: PRODUCT USED FOR UNKNOWN INDICATION
     Dosage: 35 mg, 1x/w
     Route: 048
  8. AVEENO [Concomitant]
     Indication: PRODUCT USED FOR UNKNOWN INDICATION
     Dosage: UNK
     Route: 061
  9. SEPTRA [Concomitant]
     Indication: PRODUCT USED FOR UNKNOWN INDICATION
     Dosage: 1 DF, 3x/w
  10. MAGNESIUM OXIDE [Concomitant]
     Indication: PRODUCT USED FOR UNKNOWN INDICATION
     Dosage: 420 mg, qd
     Route: 048
  11. MAGNESIUM OXIDE [Concomitant]
     Dosage: 840 mg, bid
     Route: 048
  12. DIMENHYDRINATE [Concomitant]
     Indication: PRODUCT USED FOR UNKNOWN INDICATION
     Dosage: UNK
     Route: 065

REACTIONS (8)
  - Deafness [Unknown]
  - Post transplant lymphoproliferative disorder [Recovered/Resolved]
  - Epstein-Barr virus infection [Recovered/Resolved]
  - Platelet count decreased [Unknown]
  - Rash [Unknown]
  - Cystitis haemorrhagic [Recovered/Resolved]
  - Sepsis [Recovered/Resolved with Sequelae]
  - Candidiasis [Unknown]
